FAERS Safety Report 6793831-4 (Version None)
Quarter: 2010Q2

REPORT INFORMATION
  Report Type: 
  Country: None (occurrence: None)
  Receive Date: 20100624
  Receipt Date: 20090612
  Transmission Date: 20101027
  Serious: No
  Sender: FDA-Public Use
  Company Number: US-PFIZER INC-2009156301

PATIENT
  Sex: Female
  Weight: 45.359 kg

DRUGS (3)
  1. NICOTROL [Suspect]
     Indication: SMOKING CESSATION THERAPY
     Dosage: UNK
     Dates: start: 20081001
  2. TYLENOL [Concomitant]
     Indication: HEADACHE
     Dosage: UNK
  3. OTHER ANALGESICS AND ANTIPYRETICS [Concomitant]
     Indication: HEADACHE
     Dosage: UNK

REACTIONS (2)
  - CONFUSIONAL STATE [None]
  - NASAL DISCOMFORT [None]
